FAERS Safety Report 7081585-6 (Version None)
Quarter: 2010Q4

REPORT INFORMATION
  Report Type: 
  Country: None (occurrence: None)
  Receive Date: 20101025
  Receipt Date: 20101013
  Transmission Date: 20110411
  Serious: Yes (Other)
  Sender: FDA-Public Use
  Company Number: DSA_44111_2010

PATIENT
  Age: 61 Year
  Sex: Female

DRUGS (4)
  1. DICLOFENAC (DICLOFENAC) 75 MG [Suspect]
     Indication: PRODUCT USED FOR UNKNOWN INDICATION
     Dosage: (75 MG BID ORAL)
     Route: 048
  2. PREDNISOLONE [Concomitant]
  3. METHOTREXATE [Concomitant]
  4. FOSAMAX [Concomitant]

REACTIONS (4)
  - ANAEMIA [None]
  - COLITIS [None]
  - DIARRHOEA HAEMORRHAGIC [None]
  - LARGE INTESTINAL ULCER [None]
